FAERS Safety Report 7088977-X (Version None)
Quarter: 2010Q4

REPORT INFORMATION
  Report Type: 
  Country: None (occurrence: None)
  Receive Date: 20101029
  Receipt Date: 20101021
  Transmission Date: 20110411
  Serious: Yes (Hospitalization, Disabling, Other)
  Sender: FDA-Public Use
  Company Number: 2010SP042178

PATIENT
  Age: 21 Year
  Sex: Female
  Weight: 88.4514 kg

DRUGS (3)
  1. NUVARING [Suspect]
     Indication: CONTRACEPTION
     Dates: start: 20070101, end: 20080828
  2. TYLENOL (CAPLET) [Concomitant]
  3. MOTRIN [Concomitant]

REACTIONS (15)
  - BACK INJURY [None]
  - COAGULOPATHY [None]
  - DEEP VEIN THROMBOSIS [None]
  - DYSPNOEA [None]
  - HEADACHE [None]
  - HYPERCOAGULATION [None]
  - INFECTION [None]
  - MIGRAINE [None]
  - MULTIPLE INJURIES [None]
  - PAIN [None]
  - PLEURAL EFFUSION [None]
  - PORTAL VEIN THROMBOSIS [None]
  - PULMONARY EMBOLISM [None]
  - SYSTEMIC LUPUS ERYTHEMATOSUS [None]
  - THROMBOSIS [None]
